FAERS Safety Report 23560083 (Version 1)
Quarter: 2024Q1

REPORT INFORMATION
  Report Type: Spontaneous
  Country: CN (occurrence: CN)
  Receive Date: 20240223
  Receipt Date: 20240223
  Transmission Date: 20240409
  Serious: Yes (Hospitalization)
  Sender: FDA-Public Use
  Company Number: CN-PFIZER INC-PV202400024803

PATIENT
  Age: 22 Year
  Sex: Female
  Weight: 63.6 kg

DRUGS (1)
  1. ZITHROMAX [Suspect]
     Active Substance: AZITHROMYCIN DIHYDRATE
     Indication: Pneumonia mycoplasmal
     Dosage: 0.5 G, 1X/DAY
     Route: 048
     Dates: start: 20240215, end: 20240219

REACTIONS (2)
  - Drug-induced liver injury [Unknown]
  - Off label use [Unknown]

NARRATIVE: CASE EVENT DATE: 20240215
